FAERS Safety Report 7778167-7 (Version None)
Quarter: 2011Q3

REPORT INFORMATION
  Report Type: 
  Country: None (occurrence: None)
  Receive Date: 20110922
  Receipt Date: 20110908
  Transmission Date: 20111222
  Serious: Yes (Other)
  Sender: FDA-Public Use
  Company Number: FR-1187277

PATIENT

DRUGS (1)
  1. BSS [Suspect]
     Dosage: INTRAOCULAR
     Route: 031

REACTIONS (1)
  - TOXIC ANTERIOR SEGMENT SYNDROME [None]
